FAERS Safety Report 6040671-X (Version None)
Quarter: 2009Q1

REPORT INFORMATION
  Report Type: 
  Country: None (occurrence: None)
  Receive Date: 20090116
  Receipt Date: 20080627
  Transmission Date: 20090719
  Serious: No
  Sender: FDA-Public Use
  Company Number: US-BRISTOL-MYERS SQUIBB COMPANY-14174015

PATIENT
  Age: 43 Year
  Sex: Female
  Weight: 109 kg

DRUGS (11)
  1. ABILIFY [Suspect]
     Indication: PANIC ATTACK
     Dosage: DOSE INCREASED TO 10 MG (LOT#7M17545A,EXP:DEC2010)+ LATER DECREASED TO 5 AND FINALLY WITHDRAWN.
     Dates: start: 20080301
  2. ABILIFY [Suspect]
     Indication: ANXIETY
     Dosage: DOSE INCREASED TO 10 MG (LOT#7M17545A,EXP:DEC2010)+ LATER DECREASED TO 5 AND FINALLY WITHDRAWN.
     Dates: start: 20080301
  3. ABILIFY [Suspect]
     Indication: OBSESSIVE-COMPULSIVE DISORDER
     Dosage: DOSE INCREASED TO 10 MG (LOT#7M17545A,EXP:DEC2010)+ LATER DECREASED TO 5 AND FINALLY WITHDRAWN.
     Dates: start: 20080301
  4. ABILIFY [Suspect]
     Indication: DEPRESSION
     Dosage: DOSE INCREASED TO 10 MG (LOT#7M17545A,EXP:DEC2010)+ LATER DECREASED TO 5 AND FINALLY WITHDRAWN.
     Dates: start: 20080301
  5. MULTI-VITAMIN [Concomitant]
  6. CALCIUM + VITAMIN D [Concomitant]
  7. XANAX [Concomitant]
  8. BUSPAR [Concomitant]
  9. KLONOPIN [Concomitant]
  10. DOXYCYCLINE [Concomitant]
  11. FUROSEMIDE [Concomitant]

REACTIONS (4)
  - AGITATION [None]
  - DIPLOPIA [None]
  - DRUG INEFFECTIVE [None]
  - VISION BLURRED [None]
